FAERS Safety Report 9398207 (Version 2)
Quarter: 2014Q1

REPORT INFORMATION
  Report Type: Spontaneous
  Country: ES (occurrence: ES)
  Receive Date: 20130712
  Receipt Date: 20140313
  Transmission Date: 20141002
  Serious: Yes (Other)
  Sender: FDA-Public Use
  Company Number: ES-WATSON-2013-12241

PATIENT
  Age: 81 Year
  Sex: Male

DRUGS (1)
  1. FENTANILO [Suspect]
     Indication: PRODUCT USED FOR UNKNOWN INDICATION
     Dosage: UNK
     Route: 062
     Dates: start: 201304

REACTIONS (7)
  - Confusional state [Unknown]
  - Myoclonus [Unknown]
  - Hypotension [Unknown]
  - Dysarthria [Unknown]
  - Urticaria [Unknown]
  - Somnolence [Unknown]
  - Wrong technique in drug usage process [Unknown]
